FAERS Safety Report 6035276-0 (Version None)
Quarter: 2009Q1

REPORT INFORMATION
  Report Type: 
  Country: None (occurrence: None)
  Receive Date: 20090109
  Receipt Date: 20090106
  Transmission Date: 20090719
  Serious: Yes (Other)
  Sender: FDA-Public Use
  Company Number: 038847

PATIENT
  Age: 18 Year
  Sex: Female
  Weight: 81.6 kg

DRUGS (1)
  1. PLAN B [Suspect]
     Indication: POST COITAL CONTRACEPTION
     Dosage: 1 TABLET, SINGLE, ORAL
     Route: 048
     Dates: start: 20081229, end: 20081229

REACTIONS (5)
  - BLOOD PRESSURE DECREASED [None]
  - DIZZINESS [None]
  - FACIAL BONES FRACTURE [None]
  - NAUSEA [None]
  - SYNCOPE [None]
